FAERS Safety Report 14654761 (Version 1)
Quarter: 2018Q1

REPORT INFORMATION
  Report Type: Spontaneous
  Country: JP (occurrence: JP)
  Receive Date: 20180319
  Receipt Date: 20180319
  Transmission Date: 20180509
  Serious: Yes (Hospitalization, Other)
  Sender: FDA-Public Use
  Company Number: JP-GLAXOSMITHKLINE-JP2018JPN041385

PATIENT
  Age: 70 Year
  Sex: Male

DRUGS (18)
  1. MENESIT [Concomitant]
     Active Substance: CARBIDOPA\LEVODOPA
     Dosage: 550 MG, 1D
     Dates: start: 20171115
  2. BONOTEO [Concomitant]
     Active Substance: MINODRONIC ACID
     Dosage: UNK
  3. MENESIT [Concomitant]
     Active Substance: CARBIDOPA\LEVODOPA
     Dosage: UNK
  4. MAGMITT TABLET [Concomitant]
     Dosage: UNK
  5. REQUIP [Suspect]
     Active Substance: ROPINIROLE HYDROCHLORIDE
     Indication: PARKINSON^S DISEASE
     Dosage: 8 MG, 1D
     Route: 048
     Dates: start: 20130904
  6. REQUIP [Suspect]
     Active Substance: ROPINIROLE HYDROCHLORIDE
     Dosage: 12 MG, 1D
     Route: 048
     Dates: start: 20140813
  7. REQUIP [Suspect]
     Active Substance: ROPINIROLE HYDROCHLORIDE
     Dosage: 4 MG, 1D
     Route: 048
     Dates: start: 20170913, end: 20171025
  8. MENESIT [Concomitant]
     Active Substance: CARBIDOPA\LEVODOPA
     Dosage: 450 MG, 1D
  9. NEXIUM CAPSULE [Concomitant]
     Dosage: UNK
  10. LOXONIN TAPE [Concomitant]
     Dosage: UNK
  11. MUCOSTA TABLETS [Concomitant]
     Dosage: UNK
  12. SHAKUYAKUKANZOTO [Concomitant]
     Active Substance: HERBALS
     Dosage: UNK
  13. SANCOBA OPHTHALMIC SOLUTION [Concomitant]
     Dosage: UNK
  14. TRERIEF [Concomitant]
     Active Substance: ZONISAMIDE
     Dosage: UNK
  15. MYSLEE TABLETS [Concomitant]
     Dosage: UNK
  16. REQUIP [Suspect]
     Active Substance: ROPINIROLE HYDROCHLORIDE
     Dosage: 10 MG, 1D
     Route: 048
     Dates: start: 20131030
  17. FP-OD [Concomitant]
     Active Substance: SELEGILINE HYDROCHLORIDE
     Dosage: UNK
  18. REQUIP [Suspect]
     Active Substance: ROPINIROLE HYDROCHLORIDE
     Indication: PARKINSON^S DISEASE
     Dosage: 4 MG, 1D
     Route: 048
     Dates: end: 20130710

REACTIONS (4)
  - Hospitalisation [Unknown]
  - Neurotransmitter level altered [Unknown]
  - Hypoaesthesia [Not Recovered/Not Resolved]
  - Ill-defined disorder [Not Recovered/Not Resolved]

NARRATIVE: CASE EVENT DATE: 20170913
